FAERS Safety Report 18373804 (Version 3)
Quarter: 2021Q3

REPORT INFORMATION
  Report Type: Spontaneous
  Country: US (occurrence: US)
  Receive Date: 20201012
  Receipt Date: 20210803
  Transmission Date: 20211014
  Serious: Yes (Other)
  Sender: FDA-Public Use
  Company Number: US-JNJFOC-20201004153

PATIENT
  Age: 58 Year
  Sex: Female

DRUGS (4)
  1. CETIRIZINE HCL [Concomitant]
     Active Substance: CETIRIZINE HYDROCHLORIDE
     Indication: MULTIPLE ALLERGIES
     Dates: start: 20110404, end: 20200727
  2. ELMIRON [Suspect]
     Active Substance: PENTOSAN POLYSULFATE SODIUM
     Indication: CYSTITIS INTERSTITIAL
     Dosage: 100MG TWO TO THREE TIMES PER DAY
     Route: 048
     Dates: start: 20060101, end: 20171231
  3. ELMIRON [Suspect]
     Active Substance: PENTOSAN POLYSULFATE SODIUM
     Route: 048
  4. NORTRIPTYLINE HCL [Concomitant]
     Active Substance: NORTRIPTYLINE HYDROCHLORIDE
     Indication: DEPRESSION
     Dates: start: 20170418, end: 20200225

REACTIONS (3)
  - Macular degeneration [Not Recovered/Not Resolved]
  - Retinal dystrophy [Unknown]
  - Maculopathy [Unknown]

NARRATIVE: CASE EVENT DATE: 2020
